FAERS Safety Report 6199284-1 (Version None)
Quarter: 2009Q2

REPORT INFORMATION
  Report Type: 
  Country: None (occurrence: None)
  Receive Date: 20090522
  Receipt Date: 20090513
  Transmission Date: 20091009
  Serious: Yes (Hospitalization)
  Sender: FDA-Public Use
  Company Number: PHHY2009CA17806

PATIENT
  Sex: Male

DRUGS (2)
  1. EXJADE [Suspect]
     Indication: IRON OVERLOAD
     Dosage: 750-1500 MG DAILY
     Route: 048
     Dates: start: 20081201
  2. EXJADE [Suspect]
     Indication: HAEMOCHROMATOSIS

REACTIONS (3)
  - PSEUDOLYMPHOMA [None]
  - SPLEEN OPERATION [None]
  - WEIGHT DECREASED [None]
